FAERS Safety Report 25109136 (Version 1)
Quarter: 2025Q1

REPORT INFORMATION
  Report Type: Other
  Country: US (occurrence: US)
  Receive Date: 20250322
  Receipt Date: 20250322
  Transmission Date: 20250409
  Serious: Yes (Other)
  Sender: LYNE LABORATORIES
  Company Number: US-Lyne Laboratories Inc.-2173453

PATIENT
  Age: 67 Year
  Sex: Female

DRUGS (1)
  1. TRIAMCINOLONE ACETONIDE [Suspect]
     Active Substance: TRIAMCINOLONE ACETONIDE
     Indication: Neck pain

REACTIONS (2)
  - Pancreatitis acute [Unknown]
  - Product use in unapproved indication [Unknown]
